FAERS Safety Report 4286838-2 (Version None)
Quarter: 2004Q1

REPORT INFORMATION
  Report Type: 
  Country: None (occurrence: None)
  Receive Date: 20040204
  Receipt Date: 20040123
  Transmission Date: 20041129
  Serious: Yes (Life-Threatening, Hospitalization, Other)
  Sender: FDA-Public Use
  Company Number: 03-317-0092-1

PATIENT
  Age: 50 Year
  Sex: Male

DRUGS (1)
  1. DOXORUBICIN UNKNOWON STRENGTH [Suspect]
     Indication: HEPATIC NEOPLASM MALIGNANT
     Dosage: 60MG/M2 IV EVERY 3 WK
     Route: 042
     Dates: start: 20030506, end: 20031028

REACTIONS (2)
  - FEBRILE NEUTROPENIA [None]
  - HYPOTENSION [None]
